FAERS Safety Report 25870795 (Version 1)
Quarter: 2025Q4

REPORT INFORMATION
  Report Type: Spontaneous
  Country: US (occurrence: US)
  Receive Date: 20251001
  Receipt Date: 20251001
  Transmission Date: 20260117
  Serious: No
  Sender: FRESENIUS KABI
  Company Number: US-FreseniusKabi-FK202512943

PATIENT

DRUGS (1)
  1. HEPARIN SODIUM [Suspect]
     Active Substance: HEPARIN SODIUM
     Indication: Product used for unknown indication
     Dosage: 10,000 10ML
     Dates: start: 20250919

REACTIONS (3)
  - Drug ineffective [None]
  - Therapeutic product effect increased [None]
  - Haemorrhage [None]

NARRATIVE: CASE EVENT DATE: 20250919
